FAERS Safety Report 6313734-9 (Version None)
Quarter: 2009Q3

REPORT INFORMATION
  Report Type: 
  Country: None (occurrence: None)
  Receive Date: 20090817
  Receipt Date: 20090817
  Transmission Date: 20100115
  Serious: No
  Sender: FDA-Public Use
  Company Number: None

PATIENT
  Sex: Female
  Weight: 23.1334 kg

DRUGS (2)
  1. AMPHETAMINES [Suspect]
     Indication: ATTENTION DEFICIT/HYPERACTIVITY DISORDER
     Dosage: 30MG EVERY MORNING PO
     Route: 048
     Dates: start: 20090721, end: 20090814
  2. AMPHETAMINES [Suspect]
     Indication: BIPOLAR DISORDER
     Dosage: 30MG EVERY MORNING PO
     Route: 048
     Dates: start: 20090721, end: 20090814

REACTIONS (7)
  - ABDOMINAL PAIN UPPER [None]
  - ABNORMAL BEHAVIOUR [None]
  - DEPRESSION [None]
  - DISTURBANCE IN ATTENTION [None]
  - FEELING ABNORMAL [None]
  - HEADACHE [None]
  - PRODUCT SUBSTITUTION ISSUE [None]
